FAERS Safety Report 22234705 (Version 1)
Quarter: 2023Q2

REPORT INFORMATION
  Report Type: Spontaneous
  Country: CN (occurrence: CN)
  Receive Date: 20230420
  Receipt Date: 20230420
  Transmission Date: 20230721
  Serious: Yes (Other)
  Sender: FDA-Public Use
  Company Number: CN-SPECGX-T202300996

PATIENT
  Age: 51 Year
  Sex: Male

DRUGS (4)
  1. ACETAMINOPHEN\OXYCODONE HYDROCHLORIDE [Interacting]
     Active Substance: ACETAMINOPHEN\OXYCODONE HYDROCHLORIDE
     Indication: Analgesic therapy
     Dosage: 1 DOSAGE FORM, TID
     Route: 048
  2. ACETAMINOPHEN\OXYCODONE HYDROCHLORIDE [Interacting]
     Active Substance: ACETAMINOPHEN\OXYCODONE HYDROCHLORIDE
     Indication: Preoperative care
  3. PREGABALIN [Interacting]
     Active Substance: PREGABALIN
     Indication: Analgesic therapy
     Dosage: 75 MILLIGRAM, BID
     Route: 065
  4. OXYCODONE HYDROCHLORIDE [Interacting]
     Active Substance: OXYCODONE HYDROCHLORIDE
     Indication: Analgesic therapy
     Dosage: 10 MILLIGRAM, QD
     Route: 048

REACTIONS (7)
  - Delirium [Recovered/Resolved]
  - Cognitive disorder [Recovering/Resolving]
  - Dyskinesia [Recovering/Resolving]
  - Disorientation [Recovered/Resolved]
  - Irritability [Recovering/Resolving]
  - Drug interaction [Unknown]
  - Drug ineffective [Unknown]
